FAERS Safety Report 4579895-7 (Version None)
Quarter: 2005Q1

REPORT INFORMATION
  Report Type: 
  Country: None (occurrence: None)
  Receive Date: 20050210
  Receipt Date: 20050131
  Transmission Date: 20050727
  Serious: Yes (Life-Threatening)
  Sender: FDA-Public Use
  Company Number: 2005022623

PATIENT
  Age: 66 Year
  Sex: Male
  Weight: 37.195 kg

DRUGS (6)
  1. DEITASONE (PREDNISONE) [Suspect]
     Indication: NON-HODGKIN'S LYMPHOMA
     Dosage: (50 MG/M2)INTRAVENOUS
     Route: 042
     Dates: start: 20030524, end: 20031022
  2. DELTASONE [Suspect]
     Indication: DERMATOMYOSITIS
     Dosage: (40 MG/M2), ORAL
     Route: 048
  3. CICLOBLASTINA (CYCLOPHOSPHAMIDE) [Suspect]
     Indication: NON-HODGKIN'S LYMPHOMA
     Dosage: 750 MG/M2 INTRAVENOUS
     Route: 042
     Dates: start: 20030524, end: 20031023
  4. ETOPOSIDE [Suspect]
     Indication: NON-HODGKIN'S LYMPHOMA
     Dosage: 300 MG, INTRAVENOUS
     Route: 042
     Dates: start: 20031001, end: 20031022
  5. RITUXIMAB [Suspect]
     Indication: NON-HODGKIN'S LYMPHOMA
     Dosage: INTRAVENOUS
     Route: 042
     Dates: start: 20030524, end: 20031022
  6. VINCRISTINE [Suspect]
     Indication: NON-HODGKIN'S LYMPHOMA
     Dosage: 4 MG/M2, INTRAVENOUS
     Route: 042
     Dates: start: 20030524, end: 20030911

REACTIONS (6)
  - HAEMATURIA [None]
  - METASTASES TO BONE [None]
  - PAIN [None]
  - PARAESTHESIA [None]
  - POLLAKIURIA [None]
  - PROSTATE CANCER [None]
